FAERS Safety Report 9073474 (Version 1)
Quarter: 2013Q1

REPORT INFORMATION
  Report Type: Report from Study
  Country: US (occurrence: US)
  Receive Date: 20130129
  Receipt Date: 20130129
  Transmission Date: 20140127
  Serious: No
  Sender: FDA-Public Use
  Company Number: US-ABBOTT-12P-163-0936112-00

PATIENT
  Age: 41 Year
  Sex: Female

DRUGS (6)
  1. HUMIRA 40 MG/0.8 ML PEN [Suspect]
     Indication: PSORIASIS
     Dosage: LOADING DOSE
     Dates: start: 20120423, end: 20120423
  2. HUMIRA 40 MG/0.8 ML PEN [Suspect]
     Dosage: LOADING DOSE
     Dates: start: 20120430, end: 20120430
  3. HUMIRA 40 MG/0.8 ML PEN [Suspect]
     Dates: start: 20120514
  4. SYNTHROID [Concomitant]
     Indication: HYPOTHYROIDISM
  5. CELEXA [Concomitant]
     Indication: ANXIETY
  6. YAZ [Concomitant]
     Indication: CONTRACEPTION

REACTIONS (6)
  - Rhinorrhoea [Not Recovered/Not Resolved]
  - Sinus disorder [Recovered/Resolved]
  - Headache [Not Recovered/Not Resolved]
  - Eye swelling [Not Recovered/Not Resolved]
  - Rhinorrhoea [Not Recovered/Not Resolved]
  - Headache [Not Recovered/Not Resolved]
